FAERS Safety Report 5079452-2 (Version None)
Quarter: 2006Q3

REPORT INFORMATION
  Report Type: 
  Country: None (occurrence: None)
  Receive Date: 20060811
  Receipt Date: 20060811
  Transmission Date: 20061208
  Serious: Yes (Other)
  Sender: FDA-Public Use
  Company Number: None

PATIENT
  Age: 70 Year
  Sex: Male
  Weight: 83.0083 kg

DRUGS (6)
  1. BEVACIZUMAB   10MG/KG  @TOTAL 860MG [Suspect]
     Indication: PROSTATE CANCER
     Dosage: 860MG  Q2WEEKS  IV
     Route: 042
     Dates: start: 20060601, end: 20060727
  2. ZOLADEX [Concomitant]
  3. CASODEX [Concomitant]
  4. MAG CITRATE [Concomitant]
  5. MAXZIDE [Concomitant]
  6. METHYL SULFONIL METHANE (MSM) [Concomitant]

REACTIONS (2)
  - ALANINE AMINOTRANSFERASE INCREASED [None]
  - ASPARTATE AMINOTRANSFERASE INCREASED [None]
